FAERS Safety Report 5891633-4 (Version None)
Quarter: 2008Q3

REPORT INFORMATION
  Report Type: 
  Country: None (occurrence: None)
  Receive Date: 20080908
  Receipt Date: 20080519
  Transmission Date: 20090109
  Serious: No
  Sender: FDA-Public Use
  Company Number: 002#2#2008-00332

PATIENT
  Age: 83 Year
  Sex: Female
  Weight: 62 kg

DRUGS (8)
  1. NEUPRO [Suspect]
     Indication: PARKINSON'S DISEASE
     Dosage: 2MG/24H, 1 IN 1 D, TRANSDERMAL : 6MG/24H, 1 IN 1 D, TRANSDERMAL : 4MG/24H, 1 IN 1 D, TRANSDERMAL
     Route: 062
     Dates: start: 20080401, end: 20080428
  2. NEUPRO [Suspect]
     Indication: PARKINSON'S DISEASE
     Dosage: 2MG/24H, 1 IN 1 D, TRANSDERMAL : 6MG/24H, 1 IN 1 D, TRANSDERMAL : 4MG/24H, 1 IN 1 D, TRANSDERMAL
     Route: 062
     Dates: start: 20071001
  3. EFFEXOR [Concomitant]
  4. SINEMET [Concomitant]
  5. CEPHALEXIN [Concomitant]
  6. VESICARE [Concomitant]
  7. ACTONEL [Concomitant]
  8. LUNESTA [Concomitant]

REACTIONS (1)
  - URINARY TRACT INFECTION [None]
